FAERS Safety Report 17025647 (Version 1)
Quarter: 2019Q4

REPORT INFORMATION
  Report Type: Spontaneous
  Country: US (occurrence: US)
  Receive Date: 20191113
  Receipt Date: 20191113
  Transmission Date: 20200122
  Serious: No
  Sender: FDA-Public Use
  Company Number: US-PFIZER INC-2019486970

PATIENT
  Age: 43 Year
  Sex: Female

DRUGS (2)
  1. ELELYSO [Suspect]
     Active Substance: TALIGLUCERASE ALFA
     Dosage: 7200 IU, EVERY 2 WEEKS
  2. ELELYSO [Suspect]
     Active Substance: TALIGLUCERASE ALFA
     Dosage: 7600 IU, EVERY 2 WEEKS

REACTIONS (4)
  - Conjunctivitis [Unknown]
  - Urticaria [Unknown]
  - Haematocrit decreased [Unknown]
  - Haemoglobin decreased [Unknown]
